FAERS Safety Report 9354079 (Version 1)
Quarter: 2013Q2

REPORT INFORMATION
  Report Type: Spontaneous
  Country: US (occurrence: None)
  Receive Date: 20130613
  Receipt Date: 20130613
  Transmission Date: 20140414
  Serious: Yes (Other)
  Sender: FDA-Public Use
  Company Number: SYM-2013-04620

PATIENT
  Sex: Female

DRUGS (4)
  1. WELLBUTRIN [Suspect]
     Indication: WEIGHT DECREASED
     Dates: start: 201209
  2. DEXILIANT [Concomitant]
  3. GLUMETZA [Concomitant]
  4. SPIRONOLACTONE [Concomitant]

REACTIONS (3)
  - Off label use [None]
  - Confusional state [None]
  - Memory impairment [None]
